FAERS Safety Report 6077674-5 (Version None)
Quarter: 2009Q1

REPORT INFORMATION
  Report Type: 
  Country: None (occurrence: None)
  Receive Date: 20090213
  Receipt Date: 20090206
  Transmission Date: 20090719
  Serious: Yes (Hospitalization)
  Sender: FDA-Public Use
  Company Number: BE-ROCHE-603358

PATIENT
  Sex: Female
  Weight: 77 kg

DRUGS (10)
  1. METHOXY POLYETHYLENE GLYCOL-EPOETIN BETA [Suspect]
     Route: 058
     Dates: start: 20081028
  2. METHOXY POLYETHYLENE GLYCOL-EPOETIN BETA [Suspect]
     Route: 058
     Dates: start: 20081128
  3. METHOXY POLYETHYLENE GLYCOL-EPOETIN BETA [Suspect]
     Route: 058
     Dates: start: 20090105
  4. ASAFLOW [Concomitant]
     Dates: start: 20010101
  5. ATORVASTATIN [Concomitant]
     Dates: start: 20010101
  6. LISINOPRIL [Concomitant]
     Dosage: DRUG NAME: ZENTUL-LISINOPRIL.
     Dates: start: 20010101, end: 20081212
  7. MOLSIDOMINE [Concomitant]
     Dates: start: 20010101
  8. RANITIDINE [Concomitant]
     Dates: start: 20080101
  9. CALCIUM CARBONATE [Concomitant]
     Dosage: DRUG NAME: CALCIUM CARBONATE AND IMILINE.
     Dates: start: 20010101
  10. NOVOLIN 70/30 [Concomitant]
     Dosage: TDD: 50 U/D.
     Dates: start: 20010101

REACTIONS (3)
  - PYREXIA [None]
  - RENAL FAILURE CHRONIC [None]
  - URINARY TRACT INFECTION [None]
